FAERS Safety Report 9417784 (Version 3)
Quarter: 2015Q3

REPORT INFORMATION
  Report Type: Spontaneous
  Country: BR (occurrence: BR)
  Receive Date: 20130724
  Receipt Date: 20150710
  Transmission Date: 20151125
  Serious: Yes (Hospitalization, Other)
  Sender: FDA-Public Use
  Company Number: BR-ASTRAZENECA-2013SE53001

PATIENT
  Age: 59 Year
  Sex: Male
  Weight: 73 kg

DRUGS (18)
  1. CRESTOR [Suspect]
     Active Substance: ROSUVASTATIN CALCIUM
     Indication: BLOOD CHOLESTEROL INCREASED
     Route: 048
     Dates: start: 200812, end: 2011
  2. ALPHAGAN P [Concomitant]
     Active Substance: BRIMONIDINE TARTRATE
     Indication: INTRAOCULAR PRESSURE TEST
     Dosage: TWO TIMES A DAY
     Dates: start: 2004
  3. ATENOL [Suspect]
     Active Substance: ATENOLOL
     Route: 048
     Dates: start: 2003
  4. ARADOIS [Concomitant]
     Active Substance: LOSARTAN POTASSIUM
     Dates: start: 2008
  5. DAFLON [Concomitant]
     Active Substance: DIOSMIN\HESPERIDIN
     Indication: OEDEMA
     Dosage: AS REQUIRED
  6. CRESTOR [Suspect]
     Active Substance: ROSUVASTATIN CALCIUM
     Indication: BLOOD TRIGLYCERIDES INCREASED
     Route: 048
     Dates: start: 2011, end: 201312
  7. CRESTOR [Suspect]
     Active Substance: ROSUVASTATIN CALCIUM
     Indication: BLOOD CHOLESTEROL INCREASED
     Route: 048
     Dates: start: 201312
  8. BRILINTA [Suspect]
     Active Substance: TICAGRELOR
     Indication: ACUTE MYOCARDIAL INFARCTION
     Route: 048
     Dates: start: 201307
  9. ASA [Concomitant]
     Active Substance: ASPIRIN
     Dates: start: 2004
  10. PLAVIX [Concomitant]
     Active Substance: CLOPIDOGREL BISULFATE
     Indication: THROMBOSIS PROPHYLAXIS
     Dates: start: 2013
  11. CRESTOR [Suspect]
     Active Substance: ROSUVASTATIN CALCIUM
     Indication: BLOOD TRIGLYCERIDES INCREASED
     Route: 048
     Dates: start: 200812, end: 2011
  12. CRESTOR [Suspect]
     Active Substance: ROSUVASTATIN CALCIUM
     Indication: BLOOD TRIGLYCERIDES INCREASED
     Route: 048
     Dates: start: 201312
  13. GLIFAGE XR [Concomitant]
     Active Substance: METFORMIN HYDROCHLORIDE
     Indication: DIABETES MELLITUS
     Dates: start: 2007
  14. PLAVIX [Concomitant]
     Active Substance: CLOPIDOGREL BISULFATE
     Indication: THROMBOSIS PROPHYLAXIS
     Dates: start: 200811, end: 201307
  15. LESCOL [Concomitant]
     Active Substance: FLUVASTATIN SODIUM
     Dates: end: 200812
  16. ATENOL [Suspect]
     Active Substance: ATENOLOL
     Route: 048
     Dates: start: 2013
  17. CRESTOR [Suspect]
     Active Substance: ROSUVASTATIN CALCIUM
     Indication: BLOOD CHOLESTEROL INCREASED
     Route: 048
     Dates: start: 2011, end: 201312
  18. PLAVIX [Concomitant]
     Active Substance: CLOPIDOGREL BISULFATE
     Indication: THROMBOSIS PROPHYLAXIS
     Dates: start: 2004, end: 2005

REACTIONS (18)
  - Intraocular pressure increased [Recovering/Resolving]
  - Pain [Unknown]
  - Drug effect increased [Unknown]
  - Infarction [Recovered/Resolved]
  - Chest pain [Recovered/Resolved]
  - Helicobacter gastritis [Unknown]
  - Acute myocardial infarction [Recovered/Resolved]
  - Weight decreased [Recovering/Resolving]
  - Diabetes mellitus [Recovered/Resolved]
  - Coronary artery occlusion [Recovered/Resolved]
  - Gastric haemorrhage [Unknown]
  - Syncope [Unknown]
  - Device occlusion [Recovered/Resolved]
  - Blood cholesterol decreased [Recovered/Resolved]
  - Intentional product misuse [Unknown]
  - Blood cholesterol decreased [Unknown]
  - Off label use [Recovered/Resolved]
  - Drug ineffective [Unknown]

NARRATIVE: CASE EVENT DATE: 2004
